FAERS Safety Report 10019374 (Version 1)
Quarter: 2014Q1

REPORT INFORMATION
  Report Type: Spontaneous
  Country: US (occurrence: US)
  Receive Date: 20140318
  Receipt Date: 20140318
  Transmission Date: 20141002
  Serious: No
  Sender: FDA-Public Use
  Company Number: US-TEVA-469304USA

PATIENT
  Age: 66 Year
  Sex: Female
  Weight: 65.83 kg

DRUGS (3)
  1. PROAIR HFA [Suspect]
     Indication: RESPIRATORY DISORDER
     Route: 055
     Dates: start: 20140219
  2. FLUTICASONE [Concomitant]
     Indication: PNEUMONIA
  3. ROBITUSSIN DM [Concomitant]
     Indication: COUGH

REACTIONS (4)
  - Cough [Not Recovered/Not Resolved]
  - Productive cough [Not Recovered/Not Resolved]
  - Muscle spasms [Not Recovered/Not Resolved]
  - Dyspnoea [Not Recovered/Not Resolved]
